FAERS Safety Report 4978595-9 (Version None)
Quarter: 2006Q2

REPORT INFORMATION
  Report Type: 
  Country: None (occurrence: None)
  Receive Date: 20060420
  Receipt Date: 20060202
  Transmission Date: 20061013
  Serious: Yes (Hospitalization, Disabling)
  Sender: FDA-Public Use
  Company Number: US-MERCK-0602USA01558

PATIENT
  Age: 59 Year
  Sex: Male
  Weight: 110 kg

DRUGS (1)
  1. VIOXX [Suspect]
     Indication: ARTHRITIS
     Route: 048
     Dates: start: 20010501, end: 20030401

REACTIONS (3)
  - EMOTIONAL DISTRESS [None]
  - GASTRIC HAEMORRHAGE [None]
  - NEOPLASM MALIGNANT [None]
